FAERS Safety Report 19995506 (Version 1)
Quarter: 2021Q4

REPORT INFORMATION
  Report Type: Spontaneous
  Country: US (occurrence: US)
  Receive Date: 20211026
  Receipt Date: 20211026
  Transmission Date: 20220303
  Serious: No
  Sender: FDA-Public Use
  Company Number: None

PATIENT
  Age: 59 Year
  Sex: Female

DRUGS (3)
  1. BRAFTOVI [Suspect]
     Active Substance: ENCORAFENIB
     Route: 048
     Dates: start: 202102
  2. KEYTRUDA [Concomitant]
     Active Substance: PEMBROLIZUMAB
  3. MEKTOVI [Concomitant]
     Active Substance: BINIMETINIB

REACTIONS (1)
  - Visual acuity reduced [None]

NARRATIVE: CASE EVENT DATE: 20210301
